FAERS Safety Report 5612313-6 (Version None)
Quarter: 2008Q1

REPORT INFORMATION
  Report Type: 
  Country: None (occurrence: None)
  Receive Date: 20080201
  Receipt Date: 20080201
  Transmission Date: 20080703
  Serious: Yes (Hospitalization)
  Sender: FDA-Public Use
  Company Number: None

PATIENT
  Age: 54 Year
  Sex: Female
  Weight: 79.8331 kg

DRUGS (8)
  1. PACLITAXEL [Suspect]
     Indication: BREAST CANCER
     Dosage: 147MG IVPB 2WEEK IV
     Route: 042
     Dates: start: 20070910, end: 20071022
  2. FLUOXETINE [Concomitant]
  3. VICODIN [Concomitant]
  4. BENADRYL [Concomitant]
  5. LEVOTHYROXINE SODIUM [Concomitant]
  6. WELLBUTRIN XL [Concomitant]
  7. ALBUTEROL [Concomitant]
  8. REGLAN [Concomitant]

REACTIONS (6)
  - DRUG INEFFECTIVE [None]
  - PERICARDIAL EFFUSION [None]
  - PLEURAL EFFUSION [None]
  - PNEUMONIA [None]
  - PNEUMONITIS [None]
  - THERAPEUTIC RESPONSE DECREASED [None]
